FAERS Safety Report 16428013 (Version 1)
Quarter: 2019Q2

REPORT INFORMATION
  Report Type: Spontaneous
  Country: US (occurrence: US)
  Receive Date: 20190613
  Receipt Date: 20190613
  Transmission Date: 20190711
  Serious: No
  Sender: FDA-Public Use
  Company Number: US-SA-2019SA158578

PATIENT
  Age: 52 Year
  Sex: Female

DRUGS (1)
  1. SOLIQUA 100/33 [Suspect]
     Active Substance: INSULIN GLARGINE\LIXISENATIDE
     Indication: DIABETES MELLITUS
     Dosage: 15 U, QD
     Route: 065
     Dates: start: 20190530, end: 20190607

REACTIONS (8)
  - Nasal congestion [Unknown]
  - Dizziness [Unknown]
  - Injection site erythema [Unknown]
  - Heart rate increased [Unknown]
  - Somnolence [Unknown]
  - Inflammation [Unknown]
  - Injection site pruritus [Unknown]
  - Headache [Unknown]
